FAERS Safety Report 21146602 (Version 2)
Quarter: 2022Q3

REPORT INFORMATION
  Report Type: Other
  Country: US (occurrence: None)
  Receive Date: 20220729
  Receipt Date: 20220905
  Transmission Date: 20221027
  Serious: Yes (Hospitalization)
  Sender: FDA-Public Use
  Company Number: US-ROCHE-3144129

PATIENT
  Age: 63 Year
  Sex: Female
  Weight: 114.86 kg

DRUGS (13)
  1. OCREVUS [Suspect]
     Active Substance: OCRELIZUMAB
     Indication: Multiple sclerosis
     Dosage: STARTED ABOUT 4 YEARS AGO?INFUSE 300 MG DAY 1 AND DAY 15 THEN INFUSE 600 MG EVERY 6 MONTHS?DOT: 17/J
     Route: 042
  2. MODERNA COVID-19 VACCINE [Suspect]
     Active Substance: ELASOMERAN
     Indication: COVID-19
     Dosage: BOOSTER 15/JUL/2022, 20/APR/2021 1ST, 25/MAY/2021 2ND, AND?BOOSTER 30/DEC/2021
     Route: 030
     Dates: start: 20210420, end: 20220715
  3. ALBUTEROL [Concomitant]
     Active Substance: ALBUTEROL
     Indication: Wheezing
  4. UNSPECIFIED INGREDIENT [Concomitant]
     Active Substance: UNSPECIFIED INGREDIENT
     Indication: COVID-19
     Route: 042
     Dates: start: 20220617, end: 20220617
  5. GABAPENTIN [Concomitant]
     Active Substance: GABAPENTIN
  6. DITROPAN [Concomitant]
     Active Substance: OXYBUTYNIN CHLORIDE
  7. COZAAR [Concomitant]
     Active Substance: LOSARTAN POTASSIUM
  8. NORVASC [Concomitant]
     Active Substance: AMLODIPINE BESYLATE
  9. PRILOSEC [Concomitant]
     Active Substance: OMEPRAZOLE MAGNESIUM
  10. SINGULAIR [Concomitant]
     Active Substance: MONTELUKAST SODIUM
  11. FLOVENT [Concomitant]
     Active Substance: FLUTICASONE PROPIONATE
  12. PROVENTIL [Concomitant]
     Active Substance: ALBUTEROL
  13. PRAVACHOL [Concomitant]
     Active Substance: PRAVASTATIN SODIUM

REACTIONS (6)
  - Immunisation reaction [Recovered/Resolved]
  - COVID-19 pneumonia [Recovered/Resolved]
  - Gait disturbance [Recovering/Resolving]
  - Memory impairment [Not Recovered/Not Resolved]
  - Pneumonia aspiration [Recovered/Resolved]
  - Wheezing [Not Recovered/Not Resolved]

NARRATIVE: CASE EVENT DATE: 20220101
